FAERS Safety Report 13830915 (Version 2)
Quarter: 2017Q3

REPORT INFORMATION
  Report Type: Report from Study
  Country: US (occurrence: US)
  Receive Date: 20170803
  Receipt Date: 20170814
  Transmission Date: 20171127
  Serious: Yes (Death)
  Sender: FDA-Public Use
  Company Number: US-ACTELION-A-US2017-156005

PATIENT
  Age: 86 Year
  Sex: Female
  Weight: 73.92 kg

DRUGS (14)
  1. ADCIRCA [Concomitant]
     Active Substance: TADALAFIL
     Dosage: 20 MG, BID
     Route: 048
  2. FUROSEMIDE. [Concomitant]
     Active Substance: FUROSEMIDE
     Dosage: 40 MG, QOD
  3. LATANOPROST. [Concomitant]
     Active Substance: LATANOPROST
  4. TIMOLOL. [Concomitant]
     Active Substance: TIMOLOL
  5. ATORVASTATIN [Concomitant]
     Active Substance: ATORVASTATIN
     Dosage: 25 MG, QD
  6. ONDANSETRON [Concomitant]
     Active Substance: ONDANSETRON
     Dosage: 4 MG, Q6-8 HRS, PRN
  7. ELIQUIS [Concomitant]
     Active Substance: APIXABAN
     Dosage: 5 MG, BID
  8. ASPIRIN. [Concomitant]
     Active Substance: ASPIRIN
     Dosage: 81 MG, QD
  9. ORENITRAM [Concomitant]
     Active Substance: TREPROSTINIL
  10. RALOXIFENE HYDROCHLORIDE. [Concomitant]
     Active Substance: RALOXIFENE HYDROCHLORIDE
     Dosage: 60 MG, QD
  11. ALPRAZOLAM. [Concomitant]
     Active Substance: ALPRAZOLAM
  12. ATENOLOL. [Concomitant]
     Active Substance: ATENOLOL
     Dosage: 25 MG, QD
  13. OPSUMIT [Suspect]
     Active Substance: MACITENTAN
     Indication: PULMONARY ARTERIAL HYPERTENSION
     Dosage: 10 MG, QD
     Route: 048
  14. STIOLTO RESPIMAT [Concomitant]
     Active Substance: OLODATEROL HYDROCHLORIDE\TIOTROPIUM BROMIDE MONOHYDRATE

REACTIONS (10)
  - Dizziness [Unknown]
  - Fatigue [Unknown]
  - Atrial flutter [Unknown]
  - Chest pain [Unknown]
  - Asthenia [Unknown]
  - Dyspnoea exertional [Unknown]
  - Condition aggravated [Unknown]
  - Myocardial infarction [Fatal]
  - Diarrhoea [Unknown]
  - Headache [Unknown]

NARRATIVE: CASE EVENT DATE: 201705
